FAERS Safety Report 25592282 (Version 1)
Quarter: 2025Q3

REPORT INFORMATION
  Report Type: Spontaneous
  Country: EG (occurrence: EG)
  Receive Date: 20250722
  Receipt Date: 20250722
  Transmission Date: 20251020
  Serious: Yes (Other)
  Sender: PFIZER
  Company Number: EG-PFIZER INC-PV202500087280

PATIENT
  Age: 40 Year
  Sex: Female

DRUGS (2)
  1. IBRANCE [Suspect]
     Active Substance: PALBOCICLIB
     Indication: Hormone receptor positive breast cancer
     Dosage: 125 MG, 1X/DAY (ONCE DAILY FOR 21 DAYS THEN REST FOR ONE WEEK)
     Route: 048
     Dates: start: 202503
  2. FEMARA [Concomitant]
     Active Substance: LETROZOLE

REACTIONS (2)
  - Second primary malignancy [Unknown]
  - Bone neoplasm [Unknown]
